FAERS Safety Report 5151075-6 (Version None)
Quarter: 2006Q4

REPORT INFORMATION
  Report Type: 
  Country: None (occurrence: None)
  Receive Date: 20061114
  Receipt Date: 20061114
  Transmission Date: 20070319
  Serious: No
  Sender: FDA-Public Use
  Company Number: None

PATIENT
  Sex: Male
  Weight: 59 kg

DRUGS (2)
  1. GAMUNEX [Suspect]
     Indication: IMMUNODEFICIENCY
     Dosage: 20 GRAMS  MONTHLY    IV
     Route: 042
     Dates: start: 20060817, end: 20060817
  2. GAMUNEX [Suspect]
     Indication: IMMUNODEFICIENCY
     Dosage: 5 GRAMS  MONTHLY   IV
     Route: 042
     Dates: start: 20060817, end: 20060817

REACTIONS (3)
  - BACK PAIN [None]
  - INFUSION RELATED REACTION [None]
  - SWELLING [None]
